FAERS Safety Report 6460641-7 (Version None)
Quarter: 2009Q4

REPORT INFORMATION
  Report Type: 
  Country: None (occurrence: None)
  Receive Date: 20091130
  Receipt Date: 20091123
  Transmission Date: 20100525
  Serious: Yes (Life-Threatening, Hospitalization)
  Sender: FDA-Public Use
  Company Number: HR-JNJFOC-20091107685

PATIENT
  Age: 38 Year
  Sex: Male

DRUGS (2)
  1. RISPOLEPT CONSTA [Suspect]
     Indication: SCHIZOPHRENIA
     Route: 030
  2. RISPOLEPT [Concomitant]
     Indication: SCHIZOPHRENIA

REACTIONS (3)
  - COMA [None]
  - CYANOSIS [None]
  - LETHARGY [None]
